FAERS Safety Report 17055163 (Version 1)
Quarter: 2019Q4

REPORT INFORMATION
  Report Type: Spontaneous
  Country: US (occurrence: US)
  Receive Date: 20191120
  Receipt Date: 20191120
  Transmission Date: 20200122
  Serious: Yes (Other)
  Sender: FDA-Public Use
  Company Number: US-NOVOPROD-696345

PATIENT
  Age: 71 Year
  Sex: Female

DRUGS (1)
  1. NOVOLIN 70/30 [Suspect]
     Active Substance: INSULIN HUMAN
     Indication: TYPE 2 DIABETES MELLITUS
     Dosage: 54 UNITS/34UNITS
     Route: 058

REACTIONS (4)
  - Scar excision [Unknown]
  - Arthrodesis [Unknown]
  - Product storage error [Unknown]
  - Back pain [Unknown]

NARRATIVE: CASE EVENT DATE: 2015
